FAERS Safety Report 21973488 (Version 1)
Quarter: 2023Q1

REPORT INFORMATION
  Report Type: Spontaneous
  Country: US (occurrence: US)
  Receive Date: 20230209
  Receipt Date: 20230209
  Transmission Date: 20230418
  Serious: No
  Sender: FDA-Public Use
  Company Number: US-PFIZER INC-202300056640

PATIENT
  Sex: Female

DRUGS (1)
  1. IBRANCE [Suspect]
     Active Substance: PALBOCICLIB
     Dosage: TOOK IT FOR 4 WEEKS AND 2 DAYS STRAIGHT AND FORGOT TO SKIP A WEEK

REACTIONS (3)
  - Therapeutic response unexpected [Unknown]
  - Memory impairment [Unknown]
  - Inappropriate schedule of product administration [Unknown]
